FAERS Safety Report 10720292 (Version 2)
Quarter: 2015Q1

REPORT INFORMATION
  Report Type: Spontaneous
  Country: FR (occurrence: FR)
  Receive Date: 20150119
  Receipt Date: 20150120
  Transmission Date: 20150721
  Serious: Yes (Disabling)
  Sender: FDA-Public Use
  Company Number: FR-JNJFOC-20150105897

PATIENT
  Age: 74 Year
  Sex: Male

DRUGS (4)
  1. LOGIMAX [Concomitant]
     Active Substance: FELODIPINE\METOPROLOL SUCCINATE
  2. XARELTO [Suspect]
     Active Substance: RIVAROXABAN
     Indication: ATRIAL FIBRILLATION
     Route: 065
     Dates: start: 201412, end: 20150105
  3. XARELTO [Suspect]
     Active Substance: RIVAROXABAN
     Indication: CEREBROVASCULAR ACCIDENT PROPHYLAXIS
     Route: 065
     Dates: start: 201412, end: 20150105
  4. XATRAL [Concomitant]
     Active Substance: ALFUZOSIN

REACTIONS (2)
  - Erectile dysfunction [Unknown]
  - Myalgia [Unknown]

NARRATIVE: CASE EVENT DATE: 20150104
